FAERS Safety Report 6618917-6 (Version None)
Quarter: 2010Q1

REPORT INFORMATION
  Report Type: 
  Country: None (occurrence: None)
  Receive Date: 20100308
  Receipt Date: 20100226
  Transmission Date: 20100710
  Serious: Yes (Other)
  Sender: FDA-Public Use
  Company Number: CZ-BAXTER-2008BH012675

PATIENT
  Sex: Male
  Weight: 79 kg

DRUGS (4)
  1. FEIBA VH IMMUNO [Suspect]
     Indication: HAEMARTHROSIS
     Route: 065
     Dates: start: 20060101, end: 20060101
  2. FEIBA VH IMMUNO [Suspect]
     Route: 065
     Dates: start: 20060101, end: 20060101
  3. FEIBA VH IMMUNO [Suspect]
     Route: 065
     Dates: start: 20060101, end: 20060101
  4. FEIBA VH IMMUNO [Suspect]
     Route: 065
     Dates: start: 20060101, end: 20060101

REACTIONS (1)
  - DRUG INEFFECTIVE [None]
